FAERS Safety Report 10195990 (Version 1)
Quarter: 2014Q2

REPORT INFORMATION
  Report Type: Spontaneous
  Country: US (occurrence: None)
  Receive Date: 20140523
  Receipt Date: 20140523
  Transmission Date: 20141212
  Serious: Yes (Life-Threatening)
  Sender: FDA-Public Use
  Company Number: None

PATIENT
  Age: 89 Year
  Sex: Female
  Weight: 80.7 kg

DRUGS (18)
  1. PREGABALIN [Suspect]
     Indication: PROCEDURAL PAIN
     Dosage: 1 CAPSULE, BID, ORAL
     Route: 048
     Dates: start: 20140414, end: 20140416
  2. OXYCODONE SR [Suspect]
     Indication: PROCEDURAL PAIN
     Dosage: 1 TABLET, BID, ORAL
     Route: 048
     Dates: start: 20140414, end: 20140415
  3. LISINOPRIL [Concomitant]
  4. METFORMIN [Concomitant]
  5. DOCUSATE SODIUM [Concomitant]
  6. ACETAMINOPHEN [Concomitant]
  7. LEVOTHYROXIN [Concomitant]
  8. ENOXAPARIN [Concomitant]
  9. FERROUS GLUCONATE [Concomitant]
  10. AMIODARONE [Concomitant]
  11. AMLODIPINE [Concomitant]
  12. BUMETANIDE [Concomitant]
  13. PREMARIN VAGINAL CREAM [Concomitant]
  14. MULTIVITAMIN WITH IRON [Concomitant]
  15. MILK OF MAGNESIA [Concomitant]
  16. NALOXONE [Concomitant]
  17. CALCIUM GLUCONATE [Concomitant]
  18. FUROSEMIDE [Concomitant]

REACTIONS (3)
  - Lethargy [None]
  - Unresponsive to stimuli [None]
  - Altered state of consciousness [None]
